FAERS Safety Report 8851142 (Version 1)
Quarter: 2012Q4

REPORT INFORMATION
  Report Type: 
  Country: RU (occurrence: RU)
  Receive Date: 20121019
  Receipt Date: 20121019
  Transmission Date: 20130627
  Serious: Yes (Hospitalization)
  Sender: FDA-Public Use
  Company Number: RU-ASTRAZENECA-2012SE78822

PATIENT
  Age: 63 Year
  Sex: Male
  Weight: 93 kg

DRUGS (11)
  1. BRILINTA [Suspect]
     Indication: CORONARY ARTERY DISEASE
     Route: 048
     Dates: start: 20120912, end: 20120919
  2. BRILINTA [Suspect]
     Indication: ANGINA PECTORIS
     Route: 048
     Dates: start: 20120912, end: 20120919
  3. BRILINTA [Suspect]
     Indication: ESSENTIAL HYPERTENSION
     Route: 048
     Dates: start: 20120912, end: 20120919
  4. FEVARIN [Concomitant]
     Route: 048
  5. CLEXANE [Concomitant]
     Route: 058
  6. SIMVASTATIN [Concomitant]
     Route: 048
  7. AMLODIPINE [Concomitant]
     Route: 048
  8. LISINOPRIL [Concomitant]
     Route: 048
  9. OMEPRAZOLE [Concomitant]
     Route: 048
  10. PHENAZEPAM [Concomitant]
     Route: 048
  11. CONCOR [Concomitant]
     Route: 048

REACTIONS (1)
  - Gout [Recovering/Resolving]
